FAERS Safety Report 8883126 (Version 1)
Quarter: 2012Q4

REPORT INFORMATION
  Report Type: 
  Country: CO (occurrence: CO)
  Receive Date: 20121104
  Receipt Date: 20121104
  Transmission Date: 20130627
  Serious: Yes (Death, Life-Threatening)
  Sender: FDA-Public Use
  Company Number: CO-JNJFOC-20121017669

PATIENT
  Age: 37 Year
  Sex: Male

DRUGS (1)
  1. DORIBAX [Suspect]
     Indication: BACTERIAL INFECTION
     Route: 041

REACTIONS (1)
  - Infection [Fatal]
